FAERS Safety Report 17137033 (Version 1)
Quarter: 2019Q4

REPORT INFORMATION
  Report Type: Spontaneous
  Country: PL (occurrence: PL)
  Receive Date: 20191210
  Receipt Date: 20191210
  Transmission Date: 20200122
  Serious: Yes (Hospitalization)
  Sender: FDA-Public Use
  Company Number: PL-TEVA-2019-PL-1149807

PATIENT
  Age: 17 Year
  Sex: Female

DRUGS (7)
  1. CYTARABINE. [Suspect]
     Active Substance: CYTARABINE
     Indication: ACUTE MYELOID LEUKAEMIA
     Route: 065
  2. TREOSULFAN [Suspect]
     Active Substance: TREOSULFAN
     Indication: BONE MARROW CONDITIONING REGIMEN
     Dosage: ON DAY -6, -5 AND -4
     Route: 065
  3. FLUDARABINE [Suspect]
     Active Substance: FLUDARABINE PHOSPHATE
     Indication: ACUTE MYELOID LEUKAEMIA
     Dosage: IDA-FLAG REGIMEN FOR ACUTE MYELOID LEUKAEMIA
     Route: 065
  4. THYMOGLOBULINE [Suspect]
     Active Substance: LAPINE T-LYMPHOCYTE IMMUNE GLOBULIN
     Indication: BONE MARROW CONDITIONING REGIMEN
     Dosage: ON DAYS -3, -2 AND -1.
     Route: 065
  5. IDARUBICIN [Suspect]
     Active Substance: IDARUBICIN
     Indication: ACUTE MYELOID LEUKAEMIA
     Route: 065
  6. FLUDARABINE [Suspect]
     Active Substance: FLUDARABINE PHOSPHATE
     Indication: ACUTE MYELOID LEUKAEMIA
     Dosage: RIC: ADMINISTERED ON DAYS -6, -5, -4 AND -3 AS A CONDITIONING REGIMEN
     Route: 065
  7. THIOTEPA. [Suspect]
     Active Substance: THIOTEPA
     Indication: BONE MARROW CONDITIONING REGIMEN
     Dosage: ADMINISTERED ON DAY -7
     Route: 065

REACTIONS (5)
  - Cerebral haemorrhage [Unknown]
  - Posterior reversible encephalopathy syndrome [Unknown]
  - Carotid artery thrombosis [Unknown]
  - Ischaemic stroke [Unknown]
  - Carotid artery occlusion [Unknown]
